FAERS Safety Report 16395192 (Version 1)
Quarter: 2019Q2

REPORT INFORMATION
  Report Type: Report from Study
  Country: IT (occurrence: IT)
  Receive Date: 20190605
  Receipt Date: 20190605
  Transmission Date: 20190711
  Serious: Yes (Other)
  Sender: FDA-Public Use
  Company Number: IT-MYLANLABS-2019M1051724

PATIENT
  Age: 77 Year
  Sex: Female

DRUGS (7)
  1. PRISMA                             /00390602/ [Concomitant]
     Active Substance: MIANSERIN HYDROCHLORIDE
     Dosage: UNK
  2. ACETYLSALICYLIC ACID [Concomitant]
     Active Substance: ASPIRIN
     Dosage: UNK
  3. LEVOFLOXACIN. [Suspect]
     Active Substance: LEVOFLOXACIN
     Indication: PNEUMONIA BACTERIAL
     Dosage: 500 MILLILITER, TOTAL
     Route: 042
     Dates: start: 20181005, end: 20181005
  4. DIBASE [Concomitant]
     Active Substance: CHOLECALCIFEROL
     Dosage: UNK
  5. BLOPRESS [Concomitant]
     Active Substance: CANDESARTAN CILEXETIL
     Dosage: UNK
  6. MONURIL [Concomitant]
     Active Substance: FOSFOMYCIN TROMETHAMINE
     Dosage: UNK
  7. ALENDRONAT [Concomitant]
     Active Substance: ALENDRONATE SODIUM
     Dosage: UNK

REACTIONS (1)
  - Infusion site erythema [Recovered/Resolved]

NARRATIVE: CASE EVENT DATE: 20181005
